FAERS Safety Report 24899669 (Version 1)
Quarter: 2025Q1

REPORT INFORMATION
  Report Type: Spontaneous
  Country: CN (occurrence: CN)
  Receive Date: 20250129
  Receipt Date: 20250129
  Transmission Date: 20250408
  Serious: Yes (Hospitalization)
  Sender: NOVARTIS
  Company Number: CN-002147023-NVSC2025CN010237

PATIENT
  Age: 84 Year
  Sex: Male
  Weight: 55 kg

DRUGS (1)
  1. SACUBITRIL\VALSARTAN [Suspect]
     Active Substance: SACUBITRIL\VALSARTAN
     Indication: Cardiac failure
     Dosage: 100.000 MG, BID
     Route: 048
     Dates: start: 20240603, end: 20250115

REACTIONS (4)
  - Dizziness [Recovering/Resolving]
  - Hypotension [Recovering/Resolving]
  - Shock [Recovering/Resolving]
  - Tachypnoea [Recovering/Resolving]

NARRATIVE: CASE EVENT DATE: 20250115
